FAERS Safety Report 9271717 (Version 1)
Quarter: 2013Q2

REPORT INFORMATION
  Report Type: Spontaneous
  Country: US (occurrence: US)
  Receive Date: 20130506
  Receipt Date: 20130506
  Transmission Date: 20140414
  Serious: Yes (Other)
  Sender: FDA-Public Use
  Company Number: US-PFIZER INC-2013136004

PATIENT
  Age: 61 Year
  Sex: Female

DRUGS (1)
  1. ACCURETIC [Suspect]
     Dosage: [QUINAPRIL HCL 20MG]/ [HYDROCHLOROTHIAZIDE 12.5 MG], TWICE DAILY

REACTIONS (1)
  - Bipolar disorder [Unknown]
